FAERS Safety Report 14946122 (Version 1)
Quarter: 2018Q2

REPORT INFORMATION
  Report Type: Report from Study
  Country: CZ (occurrence: CZ)
  Receive Date: 20180529
  Receipt Date: 20180529
  Transmission Date: 20180711
  Serious: Yes (Other)
  Sender: FDA-Public Use
  Company Number: CZ-VELOXIS PHARMACEUTICALS, INC.-2018VELCZ0965

PATIENT
  Age: 62 Year
  Sex: Female
  Weight: 83 kg

DRUGS (13)
  1. PURINOL                            /00003301/ [Concomitant]
     Indication: HYPERURICAEMIA
     Dosage: 100 UNK, QD
     Route: 065
     Dates: start: 20180210
  2. EUTHYROX [Concomitant]
     Active Substance: LEVOTHYROXINE SODIUM
     Indication: HYPERTHYROIDISM
     Dosage: 50 UNK, QD
     Route: 065
     Dates: start: 2016
  3. MYCLAUSEN [Suspect]
     Active Substance: MYCOPHENOLATE MOFETIL
     Indication: PRODUCT USED FOR UNKNOWN INDICATION
     Dosage: 1000 UNK, QD
  4. ANOPYRIN [Concomitant]
     Active Substance: ASPIRIN
     Indication: EMBOLISM
     Dosage: 100 UNK, UNK
     Route: 065
     Dates: start: 20171121
  5. BISEPTOL [Concomitant]
     Active Substance: SULFAMETHOXAZOLE\TRIMETHOPRIM
     Indication: PROPHYLAXIS
     Dosage: 480 MG, QD
     Route: 065
     Dates: start: 20171110
  6. TORVACARD [Concomitant]
     Active Substance: ATORVASTATIN CALCIUM
     Indication: HYPERLIPIDAEMIA
     Dosage: 20 MG, QD
     Route: 065
     Dates: start: 2016
  7. PREDNISON [Concomitant]
     Active Substance: PREDNISONE
     Indication: PRODUCT USED FOR UNKNOWN INDICATION
     Dosage: 5 MG, QD
     Route: 065
  8. ANOPYRIN [Concomitant]
     Active Substance: ASPIRIN
     Indication: ARTERIOSCLEROSIS
     Dosage: 100 MG, QD
     Route: 065
     Dates: start: 2015
  9. HELICID                            /00661201/ [Concomitant]
     Indication: PROPHYLAXIS AGAINST GASTROINTESTINAL ULCER
     Dosage: 20 MG, QD
     Route: 065
     Dates: start: 2016
  10. FURON                              /00032601/ [Concomitant]
     Active Substance: FUROSEMIDE
     Indication: DIURETIC THERAPY
     Dosage: 40 MG, QD
     Route: 065
     Dates: start: 20171214
  11. ENVARSUS XR [Suspect]
     Active Substance: TACROLIMUS
     Indication: NEPHROSCLEROSIS
     Dosage: 7.3 NG/ML, TOTAL DAILY DOSE 3
     Route: 048
  12. ROCALTROL [Concomitant]
     Active Substance: CALCITRIOL
     Indication: CHRONIC KIDNEY DISEASE-MINERAL AND BONE DISORDER
     Dosage: UNK
     Dates: start: 20180308
  13. BETALOC                            /00376902/ [Concomitant]
     Active Substance: METOPROLOL TARTRATE
     Indication: HYPERTENSION
     Dosage: 75 MG, QD
     Route: 065
     Dates: start: 2016

REACTIONS (3)
  - Cytomegalovirus infection [Recovered/Resolved]
  - Renal graft infection [None]
  - Escherichia pyelonephritis [Recovered/Resolved]

NARRATIVE: CASE EVENT DATE: 20180307
